FAERS Safety Report 8301327-3 (Version None)
Quarter: 2012Q2

REPORT INFORMATION
  Report Type: 
  Country: None (occurrence: None)
  Receive Date: 20120420
  Receipt Date: 20120411
  Transmission Date: 20120825
  Serious: Yes (Hospitalization, Other)
  Sender: FDA-Public Use
  Company Number: GB-ROCHE-1058702

PATIENT
  Age: 53 Year
  Sex: Male
  Weight: 47.6 kg

DRUGS (4)
  1. INTERFERON ALFA-2A [Suspect]
     Indication: PRODUCT USED FOR UNKNOWN INDICATION
     Route: 058
     Dates: start: 20120302, end: 20120308
  2. DISULFIRAM [Concomitant]
  3. RIBAVIRIN [Concomitant]
  4. METHADONE HCL [Concomitant]

REACTIONS (5)
  - PSYCHOTIC DISORDER [None]
  - CONFUSIONAL STATE [None]
  - PARANOIA [None]
  - AGITATION [None]
  - AGGRESSION [None]
